FAERS Safety Report 25660694 (Version 1)
Quarter: 2025Q3

REPORT INFORMATION
  Report Type: Spontaneous
  Country: US (occurrence: US)
  Receive Date: 20250808
  Receipt Date: 20250808
  Transmission Date: 20251021
  Serious: No
  Sender: ANI
  Company Number: US-ANIPHARMA-2024-US-068875

PATIENT
  Age: 66 Year
  Sex: Female

DRUGS (1)
  1. CORTICOTROPIN [Suspect]
     Active Substance: CORTICOTROPIN
     Indication: Rheumatoid arthritis
     Route: 058

REACTIONS (7)
  - Bone pain [Unknown]
  - Myalgia [Unknown]
  - Toothache [Unknown]
  - Pruritus [Unknown]
  - Rash [Unknown]
  - Arthralgia [Unknown]
  - Hypersensitivity [Unknown]

NARRATIVE: CASE EVENT DATE: 20241230
